FAERS Safety Report 22139479 (Version 1)
Quarter: 2023Q1

REPORT INFORMATION
  Report Type: Spontaneous
  Country: SE (occurrence: SE)
  Receive Date: 20230327
  Receipt Date: 20230327
  Transmission Date: 20230418
  Serious: Yes (Other)
  Sender: FDA-Public Use
  Company Number: None

PATIENT
  Age: 53 Year
  Sex: Male

DRUGS (1)
  1. FASTURTEC [Suspect]
     Active Substance: RASBURICASE
     Dosage: UNK

REACTIONS (4)
  - Acute myocardial infarction [Unknown]
  - Device dependence [Not Recovered/Not Resolved]
  - Renal failure [Not Recovered/Not Resolved]
  - Haemolysis [Unknown]

NARRATIVE: CASE EVENT DATE: 20221201
